FAERS Safety Report 11574325 (Version 1)
Quarter: 2015Q3

REPORT INFORMATION
  Report Type: Spontaneous
  Country: IT (occurrence: IT)
  Receive Date: 20150930
  Receipt Date: 20150930
  Transmission Date: 20151125
  Serious: Yes (Hospitalization)
  Sender: FDA-Public Use
  Company Number: IT-ACCORD-033925

PATIENT
  Age: 51 Year
  Sex: Female

DRUGS (5)
  1. GAVISCON [Concomitant]
     Active Substance: ALUMINUM HYDROXIDE\MAGNESIUM CARBONATE
     Dosage: STRENGTH: SODIUM ALGINATE 500 MG/10 ML + SODIUM BICARBONATE 267 MG/10 ML.
  2. ZOMETA [Suspect]
     Active Substance: ZOLEDRONIC ACID
     Indication: CERVIX CARCINOMA
     Dosage: STRENGTH: 4 MG
     Route: 042
     Dates: end: 20150914
  3. CARVASIN [Concomitant]
     Active Substance: ISOSORBIDE DINITRATE
     Dosage: STRENGTH: 10 MG
  4. EN [Concomitant]
     Active Substance: DELORAZEPAM
     Dosage: STRENGTH: 1 MG/ML
  5. PACLITAXEL ACCORD [Suspect]
     Active Substance: PACLITAXEL
     Indication: CERVIX CARCINOMA
     Dosage: STRENGTH: 6 MG/ML
     Route: 042
     Dates: end: 20150914

REACTIONS (2)
  - Off label use [Unknown]
  - Hypocalcaemia [Recovering/Resolving]

NARRATIVE: CASE EVENT DATE: 20150913
